FAERS Safety Report 16347340 (Version 1)
Quarter: 2019Q2

REPORT INFORMATION
  Report Type: Report from Study
  Country: ES (occurrence: ES)
  Receive Date: 20190523
  Receipt Date: 20190523
  Transmission Date: 20190711
  Serious: Yes (Death, Hospitalization, Other)
  Sender: FDA-Public Use
  Company Number: ES-ELI_LILLY_AND_COMPANY-ES201905009175

PATIENT
  Sex: Female

DRUGS (3)
  1. TARGIN [Concomitant]
     Active Substance: NALOXONE HYDROCHLORIDE\OXYCODONE HYDROCHLORIDE
     Indication: PAIN
     Dosage: UNK
  2. PARACETAMOL [Concomitant]
     Active Substance: ACETAMINOPHEN
     Indication: PAIN
     Dosage: UNK
  3. TERIPARATIDE [Suspect]
     Active Substance: TERIPARATIDE
     Indication: OSTEOPOROSIS
     Dosage: 20 UG, DAILY
     Route: 058
     Dates: start: 20190405, end: 20190509

REACTIONS (5)
  - Tumour ulceration [Unknown]
  - Anaemia [Unknown]
  - Syncope [Unknown]
  - Interstitial lung disease [Fatal]
  - Respiratory failure [Unknown]

NARRATIVE: CASE EVENT DATE: 20190423
